FAERS Safety Report 4435955-2 (Version None)
Quarter: 2004Q3

REPORT INFORMATION
  Report Type: 
  Country: None (occurrence: None)
  Receive Date: 20040826
  Receipt Date: 20040811
  Transmission Date: 20050211
  Serious: No
  Sender: FDA-Public Use
  Company Number: 04P-163-0270131-00

PATIENT
  Age: 28 Year
  Sex: Male

DRUGS (1)
  1. DILAUDID [Suspect]
     Indication: JOINT DISLOCATION
     Dosage: 2 MILLIGRAM/MILLILITERS, ONCE, INTRAMUSCULAR
     Route: 030
     Dates: start: 20040810, end: 20040810

REACTIONS (1)
  - CARDIAC ARREST [None]
